FAERS Safety Report 25836208 (Version 1)
Quarter: 2025Q3

REPORT INFORMATION
  Report Type: Spontaneous
  Country: US (occurrence: None)
  Receive Date: 20250922
  Receipt Date: 20250922
  Transmission Date: 20251020
  Serious: Yes (Death)
  Sender: FDA-CTU
  Company Number: None

PATIENT
  Age: 76 Year
  Sex: Female

DRUGS (1)
  1. BRIMONIDINE [Suspect]
     Active Substance: BRIMONIDINE TARTRATE
     Indication: Borderline glaucoma
     Dosage: OTHER QUANTITY : 1 DROP;?FREQUENCY : TWICE A DAY;?OTHER ROUTE : EYES;?
     Route: 050

REACTIONS (1)
  - Death [None]
